FAERS Safety Report 5733012-6 (Version None)
Quarter: 2008Q2

REPORT INFORMATION
  Report Type: 
  Country: None (occurrence: None)
  Receive Date: 20080509
  Receipt Date: 20080430
  Transmission Date: 20081010
  Serious: Yes (Other)
  Sender: FDA-Public Use
  Company Number: CA-BAYER-200813563NA

PATIENT
  Sex: Female

DRUGS (1)
  1. CAMPATH [Suspect]
     Indication: BONE MARROW TRANSPLANT
     Dates: start: 20080101

REACTIONS (1)
  - BONE MARROW TRANSPLANT REJECTION [None]
